FAERS Safety Report 9517924 (Version 1)
Quarter: 2013Q3

REPORT INFORMATION
  Report Type: Spontaneous
  Country: US (occurrence: None)
  Receive Date: 20130910
  Receipt Date: 20130910
  Transmission Date: 20140515
  Serious: Yes (Disabling)
  Sender: FDA-Public Use
  Company Number: None

PATIENT
  Age: 55 Year
  Sex: Female
  Weight: 74.84 kg

DRUGS (1)
  1. BENADRYL [Suspect]

REACTIONS (6)
  - Hypersensitivity [None]
  - Swelling face [None]
  - Eye swelling [None]
  - Pruritus [None]
  - Pruritus [None]
  - Skin exfoliation [None]
